FAERS Safety Report 4698884-5 (Version None)
Quarter: 2005Q2

REPORT INFORMATION
  Report Type: 
  Country: None (occurrence: None)
  Receive Date: 20050624
  Receipt Date: 20050614
  Transmission Date: 20051028
  Serious: Yes (Death)
  Sender: FDA-Public Use
  Company Number: 200511756JP

PATIENT
  Age: 50 Year
  Sex: Male

DRUGS (4)
  1. ALLEGRA [Suspect]
     Indication: ECZEMA
     Route: 048
  2. TAKEPRON [Concomitant]
  3. FUROSEMIDE [Concomitant]
  4. PROMAC                                  /JPN/ [Concomitant]

REACTIONS (1)
  - AGRANULOCYTOSIS [None]
